FAERS Safety Report 6495619-0 (Version None)
Quarter: 2009Q4

REPORT INFORMATION
  Report Type: 
  Country: None (occurrence: None)
  Receive Date: 20091214
  Receipt Date: 20090728
  Transmission Date: 20100525
  Serious: No
  Sender: FDA-Public Use
  Company Number: US-BRISTOL-MYERS SQUIBB COMPANY-14714463

PATIENT
  Age: 35 Year
  Sex: Female

DRUGS (4)
  1. ABILIFY [Suspect]
     Indication: MAJOR DEPRESSION
     Route: 048
     Dates: start: 20081223
  2. EFFEXOR [Concomitant]
  3. LUVOX [Concomitant]
  4. KLONOPIN [Concomitant]

REACTIONS (1)
  - ALOPECIA [None]
